FAERS Safety Report 6693781-8 (Version None)
Quarter: 2010Q2

REPORT INFORMATION
  Report Type: 
  Country: None (occurrence: None)
  Receive Date: 20100423
  Receipt Date: 20100414
  Transmission Date: 20101027
  Serious: Yes (Hospitalization)
  Sender: FDA-Public Use
  Company Number: GB-PFIZER INC-2010047436

PATIENT
  Age: 76 Year
  Sex: Female

DRUGS (7)
  1. AZITHROMYCIN [Suspect]
     Indication: CHRONIC OBSTRUCTIVE PULMONARY DISEASE
     Dosage: 500 MG, 3 TIMES WEEKLY
     Route: 048
     Dates: start: 20100222, end: 20100225
  2. AMIODARONE [Interacting]
     Indication: SUPRAVENTRICULAR TACHYCARDIA
     Dosage: 200 MG, UNK
     Route: 048
     Dates: start: 20090301, end: 20100225
  3. ACETYLSALICYLIC ACID [Concomitant]
     Indication: ANGINA PECTORIS
     Dosage: 75 MG, 1X/DAY
     Route: 048
  4. BENDROFLUMETHIAZIDE [Concomitant]
     Indication: HYPERTENSION
     Dosage: 2.5 MG, 1X/DAY
     Route: 048
  5. CARBOCISTEINE [Concomitant]
     Indication: CHRONIC OBSTRUCTIVE PULMONARY DISEASE
     Dosage: 750 MG, 3X/DAY
     Route: 048
     Dates: start: 20100201
  6. FLUOXETINE [Concomitant]
     Indication: DEPRESSION
     Dosage: 20 MG, 1X/DAY
     Route: 048
  7. ISOSORBIDE [Concomitant]
     Indication: ANGINA PECTORIS
     Dosage: 20 MG, 2X/DAY

REACTIONS (7)
  - ACUTE CORONARY SYNDROME [None]
  - ARRHYTHMIA [None]
  - BLOOD MAGNESIUM DECREASED [None]
  - BRADYCARDIA [None]
  - DRUG INTERACTION [None]
  - ECG SIGNS OF MYOCARDIAL ISCHAEMIA [None]
  - ELECTROCARDIOGRAM QT PROLONGED [None]
